FAERS Safety Report 24548675 (Version 1)
Quarter: 2024Q4

REPORT INFORMATION
  Report Type: Spontaneous
  Country: US (occurrence: None)
  Receive Date: 20241023
  Receipt Date: 20241023
  Transmission Date: 20250114
  Serious: No
  Sender: Public
  Company Number: None

PATIENT
  Age: 47 Year
  Sex: Female

DRUGS (1)
  1. PHENTERMINE HYDROCHLORIDE [Suspect]
     Active Substance: PHENTERMINE HYDROCHLORIDE
     Indication: Weight decreased
     Dates: start: 20231023, end: 20231122

REACTIONS (3)
  - Rectal haemorrhage [None]
  - Gastrointestinal pain [None]
  - Constipation [None]

NARRATIVE: CASE EVENT DATE: 20240524
